FAERS Safety Report 7201437-8 (Version None)
Quarter: 2010Q4

REPORT INFORMATION
  Report Type: 
  Country: None (occurrence: None)
  Receive Date: 20101215
  Receipt Date: 20101130
  Transmission Date: 20110411
  Serious: Yes (Death, Life-Threatening)
  Sender: FDA-Public Use
  Company Number: 2010003652

PATIENT
  Age: 66 Year
  Sex: Female

DRUGS (6)
  1. TARCEVA [Suspect]
     Indication: LUNG ADENOCARCINOMA
     Dosage: (150 MG,QD),ORAL
     Route: 048
     Dates: start: 20090625, end: 20090907
  2. LEVOTHYROXINE SODIUM [Concomitant]
  3. RINDERON (BETAMETHASONE) [Concomitant]
  4. DEPAKEN-R [Concomitant]
  5. ALFAROL (ALFACALCIDOL) [Concomitant]
  6. CALCIUM LACTATE (CALCIUM LACTATE) [Concomitant]

REACTIONS (7)
  - ACTIVITIES OF DAILY LIVING IMPAIRED [None]
  - CONSTIPATION [None]
  - CONVULSION [None]
  - DIZZINESS [None]
  - LEUKOENCEPHALOPATHY [None]
  - METASTASES TO CENTRAL NERVOUS SYSTEM [None]
  - METASTASES TO MENINGES [None]
